FAERS Safety Report 5006318-6 (Version None)
Quarter: 2006Q2

REPORT INFORMATION
  Report Type: 
  Country: None (occurrence: None)
  Receive Date: 20060516
  Receipt Date: 20060504
  Transmission Date: 20061013
  Serious: Yes (Other)
  Sender: FDA-Public Use
  Company Number: 2006060055

PATIENT
  Age: 43 Year
  Sex: Male

DRUGS (3)
  1. LIPITOR [Suspect]
     Indication: HYPERLIPIDAEMIA
     Dosage: 20 MG
  2. VIAGRA [Suspect]
     Indication: ILL-DEFINED DISORDER
  3. CELEBREX [Concomitant]

REACTIONS (4)
  - BLINDNESS TRANSIENT [None]
  - EYE PAIN [None]
  - HEADACHE [None]
  - OTITIS MEDIA [None]
